FAERS Safety Report 8386142-7 (Version None)
Quarter: 2012Q2

REPORT INFORMATION
  Report Type: 
  Country: None (occurrence: None)
  Receive Date: 20120523
  Receipt Date: 20120511
  Transmission Date: 20120825
  Serious: Yes (Hospitalization, Other)
  Sender: FDA-Public Use
  Company Number: AUR-APL-2012-01163

PATIENT
  Age: 25 Year
  Sex: Male
  Weight: 68.93 kg

DRUGS (2)
  1. MECLIZINE [Concomitant]
  2. AMOXICILLIN [Suspect]
     Indication: CHRONIC SINUSITIS
     Dosage: 1500 MG (500 MG,3 IN 1 D),ORAL
     Route: 048
     Dates: start: 20111205, end: 20111214

REACTIONS (19)
  - SKIN DISCOLOURATION [None]
  - ILL-DEFINED DISORDER [None]
  - EYE DISORDER [None]
  - TINNITUS [None]
  - TENDONITIS [None]
  - HYPOAESTHESIA [None]
  - FUNGAL INFECTION [None]
  - SKIN DISORDER [None]
  - COUNTERFEIT DRUG ADMINISTERED [None]
  - WEIGHT DECREASED [None]
  - GASTROINTESTINAL DISORDER [None]
  - NERVE INJURY [None]
  - LOCAL SWELLING [None]
  - SWELLING FACE [None]
  - OEDEMA PERIPHERAL [None]
  - SENSORY DISTURBANCE [None]
  - PENILE PAIN [None]
  - VIITH NERVE PARALYSIS [None]
  - RASH [None]
